FAERS Safety Report 5753085-4 (Version None)
Quarter: 2008Q2

REPORT INFORMATION
  Report Type: 
  Country: None (occurrence: None)
  Receive Date: 20080527
  Receipt Date: 20080515
  Transmission Date: 20081010
  Serious: Yes (Other)
  Sender: FDA-Public Use
  Company Number: GXKR2006GB02472

PATIENT
  Age: 46 Year
  Sex: Female

DRUGS (7)
  1. AMOXICILLIN [Suspect]
     Indication: INFECTION
     Dosage: ORAL
     Route: 048
     Dates: start: 20060401, end: 20060401
  2. PRAMIPEXOLE DIHYDROCHLORIDE [Suspect]
     Indication: PARKINSON'S DISEASE
     Dosage: 2.8 MG, ORAL
     Route: 048
     Dates: end: 20060401
  3. LEVODOPA(LEVODOPA) [Suspect]
     Indication: PARKINSON'S DISEASE
     Dosage: ORAL
     Route: 048
     Dates: start: 20060101, end: 20060101
  4. CARBIDOPA(CARBIDOPA) [Suspect]
     Indication: PARKINSON'S DISEASE
     Dosage: ORAL
     Route: 048
     Dates: start: 20060101, end: 20060101
  5. QININE (QUININE) [Concomitant]
  6. SERTRALINE [Concomitant]
  7. ROSUVASTATIN (ROSUVASTATIN) [Concomitant]

REACTIONS (4)
  - ANAPHYLACTIC REACTION [None]
  - DRUG INTERACTION [None]
  - EYE SWELLING [None]
  - SWELLING FACE [None]
